FAERS Safety Report 4328656-2 (Version None)
Quarter: 2004Q1

REPORT INFORMATION
  Report Type: 
  Country: None (occurrence: None)
  Receive Date: 20040319
  Receipt Date: 20040304
  Transmission Date: 20041129
  Serious: Yes (Other)
  Sender: FDA-Public Use
  Company Number: 601103

PATIENT
  Age: 64 Year
  Sex: Male
  Weight: 58.9 kg

DRUGS (1)
  1. RECOMBINANTE (RECOMBINANT ANTIHEMOPHILIC FACTOR VIII) [Suspect]
     Indication: FACTOR VIII DEFICIENCY
     Dosage: INTRAVENOUS
     Route: 042
     Dates: start: 19730101, end: 20020501

REACTIONS (1)
  - HEPATITIS C ANTIBODY POSITIVE [None]
